FAERS Safety Report 5129061-1 (Version None)
Quarter: 2006Q4

REPORT INFORMATION
  Report Type: 
  Country: None (occurrence: None)
  Receive Date: 20061011
  Receipt Date: 20060928
  Transmission Date: 20070319
  Serious: Yes (Hospitalization)
  Sender: FDA-Public Use
  Company Number: 2006PV020575

PATIENT
  Age: 73 Year
  Sex: Male
  Weight: 87.0906 kg

DRUGS (17)
  1. BYETTA [Suspect]
     Indication: DIABETES MELLITUS NON-INSULIN-DEPENDENT
     Dosage: 5 MCG; BID; SC
     Route: 058
     Dates: start: 20060201
  2. PLAVIX [Concomitant]
  3. LANTUS [Concomitant]
  4. LASIX [Concomitant]
  5. HYDROCHLOROTHIAZIDE [Concomitant]
  6. CYMBALTA [Concomitant]
  7. COREG [Concomitant]
  8. DIGITEK [Concomitant]
  9. COUMADIN [Concomitant]
  10. HYTRIN [Concomitant]
  11. ALLOPURINOL [Concomitant]
  12. ZOCOR [Concomitant]
  13. AMIODARONE HCL [Concomitant]
  14. ZEMPLAR [Concomitant]
  15. FOLIC ACID [Concomitant]
  16. ASPIRIN [Concomitant]
  17. DILTIAZE [Concomitant]

REACTIONS (13)
  - BALANCE DISORDER [None]
  - BLOOD GLUCOSE DECREASED [None]
  - CARDIAC FAILURE CONGESTIVE [None]
  - CONDITION AGGRAVATED [None]
  - CONTUSION [None]
  - DIZZINESS [None]
  - DYSPNOEA [None]
  - FALL [None]
  - FATIGUE [None]
  - HYPOTENSION [None]
  - SOMNOLENCE [None]
  - SQUAMOUS CELL CARCINOMA OF SKIN [None]
  - WEIGHT DECREASED [None]
